FAERS Safety Report 12471007 (Version 1)
Quarter: 2016Q2

REPORT INFORMATION
  Report Type: Spontaneous
  Country: US (occurrence: US)
  Receive Date: 20160616
  Receipt Date: 20160616
  Transmission Date: 20160815
  Serious: Yes (Other)
  Sender: FDA-Public Use
  Company Number: US-ASTRAZENECA-2016SE62513

PATIENT
  Age: 60 Year
  Sex: Male

DRUGS (1)
  1. BRILINTA [Suspect]
     Active Substance: TICAGRELOR
     Indication: STENT PLACEMENT
     Route: 048
     Dates: start: 20160530

REACTIONS (2)
  - Stent malfunction [Unknown]
  - Vascular stent thrombosis [Unknown]

NARRATIVE: CASE EVENT DATE: 20160605
